FAERS Safety Report 7201180-5 (Version None)
Quarter: 2010Q4

REPORT INFORMATION
  Report Type: 
  Country: None (occurrence: None)
  Receive Date: 20101229
  Receipt Date: 20101221
  Transmission Date: 20110411
  Serious: Yes (Death, Other)
  Sender: FDA-Public Use
  Company Number: FR-CELGENEUS-056-50794-10121852

PATIENT

DRUGS (1)
  1. VIDAZA [Suspect]
     Route: 050

REACTIONS (5)
  - AZOTAEMIA [None]
  - ELECTROLYTE IMBALANCE [None]
  - GLYCOSURIA [None]
  - HYPOPHOSPHATAEMIA [None]
  - RENAL TUBULAR ACIDOSIS [None]
